FAERS Safety Report 7007647-7 (Version None)
Quarter: 2010Q3

REPORT INFORMATION
  Report Type: 
  Country: None (occurrence: None)
  Receive Date: 20100922
  Receipt Date: 20100913
  Transmission Date: 20110219
  Serious: Yes (Other)
  Sender: FDA-Public Use
  Company Number: US-PFIZER INC-2010116356

PATIENT
  Sex: Male
  Weight: 131.52 kg

DRUGS (1)
  1. VIAGRA [Suspect]
     Indication: SEXUAL DYSFUNCTION
     Dosage: 25 MG, UNK
     Route: 048
     Dates: start: 20000101

REACTIONS (3)
  - DIABETES MELLITUS [None]
  - HYPERTENSION [None]
  - ULCER [None]
